FAERS Safety Report 26193314 (Version 1)
Quarter: 2025Q4

REPORT INFORMATION
  Report Type: Spontaneous
  Country: CA (occurrence: CA)
  Receive Date: 20251223
  Receipt Date: 20251223
  Transmission Date: 20260117
  Serious: Yes (Death, Other)
  Sender: BRISTOL-MYERS SQUIBB COMPANY
  Company Number: CA-BRISTOL-MYERS SQUIBB COMPANY-2025-171784

PATIENT
  Age: 44 Year
  Sex: Female

DRUGS (361)
  1. ORENCIA [Suspect]
     Active Substance: ABATACEPT
     Indication: Rheumatoid arthritis
     Route: 041
  2. ORENCIA [Suspect]
     Active Substance: ABATACEPT
     Indication: Psoriatic arthropathy
     Route: 058
  3. ORENCIA [Suspect]
     Active Substance: ABATACEPT
     Route: 058
  4. ORENCIA [Suspect]
     Active Substance: ABATACEPT
     Route: 058
  5. ORENCIA [Suspect]
     Active Substance: ABATACEPT
     Route: 058
  6. ORENCIA [Suspect]
     Active Substance: ABATACEPT
     Route: 058
  7. ORENCIA [Suspect]
     Active Substance: ABATACEPT
     Route: 058
  8. ORENCIA [Suspect]
     Active Substance: ABATACEPT
     Route: 058
  9. ORENCIA [Suspect]
     Active Substance: ABATACEPT
     Route: 041
  10. ORENCIA [Suspect]
     Active Substance: ABATACEPT
     Route: 015
  11. ORENCIA [Suspect]
     Active Substance: ABATACEPT
     Route: 058
  12. ORENCIA [Suspect]
     Active Substance: ABATACEPT
     Route: 042
  13. ORENCIA [Suspect]
     Active Substance: ABATACEPT
     Route: 042
  14. ORENCIA [Suspect]
     Active Substance: ABATACEPT
     Route: 058
  15. TRIAMCINOLONE ACETONIDE [Suspect]
     Active Substance: TRIAMCINOLONE ACETONIDE
     Indication: Rheumatoid arthritis
     Route: 014
  16. ACETAMINOPHEN [Concomitant]
     Active Substance: ACETAMINOPHEN
     Indication: Rheumatoid arthritis
  17. ACETAMINOPHEN [Concomitant]
     Active Substance: ACETAMINOPHEN
     Indication: Pyrexia
  18. ACETAMINOPHEN [Concomitant]
     Active Substance: ACETAMINOPHEN
     Indication: Pain
  19. ACTEMRA [Concomitant]
     Active Substance: TOCILIZUMAB
     Indication: Rheumatoid arthritis
     Route: 042
  20. ACTEMRA [Concomitant]
     Active Substance: TOCILIZUMAB
  21. ACTEMRA [Concomitant]
     Active Substance: TOCILIZUMAB
     Route: 042
  22. ACTEMRA [Concomitant]
     Active Substance: TOCILIZUMAB
     Route: 058
  23. ACTEMRA [Concomitant]
     Active Substance: TOCILIZUMAB
     Route: 058
  24. ACTEMRA [Concomitant]
     Active Substance: TOCILIZUMAB
     Route: 048
  25. ACTEMRA [Concomitant]
     Active Substance: TOCILIZUMAB
  26. ACTEMRA [Concomitant]
     Active Substance: TOCILIZUMAB
     Route: 058
  27. ACTEMRA [Concomitant]
     Active Substance: TOCILIZUMAB
  28. ACTEMRA [Concomitant]
     Active Substance: TOCILIZUMAB
     Route: 042
  29. ACTEMRA [Concomitant]
     Active Substance: TOCILIZUMAB
     Route: 016
  30. ACTEMRA [Concomitant]
     Active Substance: TOCILIZUMAB
     Route: 042
  31. ACTEMRA [Concomitant]
     Active Substance: TOCILIZUMAB
     Route: 048
  32. ALENDRONATE SODIUM [Concomitant]
     Active Substance: ALENDRONATE SODIUM
     Indication: Rheumatoid arthritis
  33. ALENDRONATE SODIUM [Concomitant]
     Active Substance: ALENDRONATE SODIUM
     Route: 048
  34. ALENDRONATE SODIUM [Concomitant]
     Active Substance: ALENDRONATE SODIUM
  35. ALENDRONATE SODIUM [Concomitant]
     Active Substance: ALENDRONATE SODIUM
     Route: 016
  36. PREDNISONE [Concomitant]
     Active Substance: PREDNISONE
     Indication: Rheumatoid arthritis
     Route: 048
  37. PREDNISONE [Concomitant]
     Active Substance: PREDNISONE
     Indication: Systemic lupus erythematosus
  38. PREDNISONE [Concomitant]
     Active Substance: PREDNISONE
     Indication: Synovitis
  39. PREDNISONE [Concomitant]
     Active Substance: PREDNISONE
     Indication: Psoriatic arthropathy
     Route: 048
  40. PREDNISONE [Concomitant]
     Active Substance: PREDNISONE
     Indication: Pemphigus
     Route: 048
  41. PREDNISONE [Concomitant]
     Active Substance: PREDNISONE
     Indication: Inflammation
     Route: 048
  42. PREDNISONE [Concomitant]
     Active Substance: PREDNISONE
     Indication: Bursitis
  43. APREPITANT [Concomitant]
     Active Substance: APREPITANT
     Indication: Product used for unknown indication
     Route: 048
  44. APREPITANT [Concomitant]
     Active Substance: APREPITANT
  45. APREPITANT [Concomitant]
     Active Substance: APREPITANT
  46. APREPITANT [Concomitant]
     Active Substance: APREPITANT
     Route: 042
  47. ARAVA [Concomitant]
     Active Substance: LEFLUNOMIDE
     Indication: Product used for unknown indication
     Route: 019
  48. ARAVA [Concomitant]
     Active Substance: LEFLUNOMIDE
     Route: 048
  49. ARAVA [Concomitant]
     Active Substance: LEFLUNOMIDE
     Route: 005
  50. ARAVA [Concomitant]
     Active Substance: LEFLUNOMIDE
  51. ARAVA [Concomitant]
     Active Substance: LEFLUNOMIDE
     Route: 048
  52. ASACOL [Concomitant]
     Active Substance: MESALAMINE
     Indication: Product used for unknown indication
  53. BORAGE OIL [Concomitant]
     Active Substance: BORAGE OIL
     Indication: Product used for unknown indication
  54. CALCIUM GLUCONATE [Concomitant]
     Active Substance: CALCIUM GLUCONATE
     Indication: Product used for unknown indication
  55. CELEBREX [Concomitant]
     Active Substance: CELECOXIB
     Indication: Product used for unknown indication
     Route: 048
  56. CELEBREX [Concomitant]
     Active Substance: CELECOXIB
     Route: 048
  57. CELECOXIB [Concomitant]
     Active Substance: CELECOXIB
     Indication: Product used for unknown indication
  58. CELECOXIB [Concomitant]
     Active Substance: CELECOXIB
  59. CELECOXIB [Concomitant]
     Active Substance: CELECOXIB
  60. CERTOLIZUMAB PEGOL [Concomitant]
     Active Substance: CERTOLIZUMAB PEGOL
     Indication: Product used for unknown indication
  61. CETIRIZINE [Concomitant]
     Active Substance: CETIRIZINE HYDROCHLORIDE
     Indication: Rheumatoid arthritis
  62. CETIRIZINE [Concomitant]
     Active Substance: CETIRIZINE HYDROCHLORIDE
     Route: 048
  63. CETIRIZINE [Concomitant]
     Active Substance: CETIRIZINE HYDROCHLORIDE
     Route: 048
  64. CETIRIZINE [Concomitant]
     Active Substance: CETIRIZINE HYDROCHLORIDE
  65. CETIRIZINE [Concomitant]
     Active Substance: CETIRIZINE HYDROCHLORIDE
  66. CETIRIZINE [Concomitant]
     Active Substance: CETIRIZINE HYDROCHLORIDE
     Route: 048
  67. CETIRIZINE [Concomitant]
     Active Substance: CETIRIZINE HYDROCHLORIDE
  68. CETIRIZINE HYDROCHLORIDE [Concomitant]
     Active Substance: CETIRIZINE HYDROCHLORIDE
     Indication: Rheumatoid arthritis
  69. CETIRIZINE HYDROCHLORIDE [Concomitant]
     Active Substance: CETIRIZINE HYDROCHLORIDE
  70. CETIRIZINE HYDROCHLORIDE [Concomitant]
     Active Substance: CETIRIZINE HYDROCHLORIDE
  71. CETIRIZINE HYDROCHLORIDE [Concomitant]
     Active Substance: CETIRIZINE HYDROCHLORIDE
     Route: 048
  72. CETIRIZINE HYDROCHLORIDE [Concomitant]
     Active Substance: CETIRIZINE HYDROCHLORIDE
     Route: 048
  73. CETIRIZINE HYDROCHLORIDE [Concomitant]
     Active Substance: CETIRIZINE HYDROCHLORIDE
  74. CETIRIZINE HYDROCHLORIDE [Concomitant]
     Active Substance: CETIRIZINE HYDROCHLORIDE
  75. CETIRIZINE HYDROCHLORIDE [Concomitant]
     Active Substance: CETIRIZINE HYDROCHLORIDE
     Route: 048
  76. CETIRIZINE HYDROCHLORIDE [Concomitant]
     Active Substance: CETIRIZINE HYDROCHLORIDE
  77. CETIRIZINE HYDROCHLORIDE [Concomitant]
     Active Substance: CETIRIZINE HYDROCHLORIDE
     Route: 048
  78. CETIRIZINE HYDROCHLORIDE [Concomitant]
     Active Substance: CETIRIZINE HYDROCHLORIDE
  79. CETRIMIDE [Concomitant]
     Active Substance: CETRIMIDE
     Indication: Product used for unknown indication
  80. CETRIMIDE [Concomitant]
     Active Substance: CETRIMIDE
     Route: 048
  81. CETRIMIDE [Concomitant]
     Active Substance: CETRIMIDE
  82. CETRIMIDE [Concomitant]
     Active Substance: CETRIMIDE
     Route: 048
  83. CETRIMIDE [Concomitant]
     Active Substance: CETRIMIDE
  84. CETRIMIDE [Concomitant]
     Active Substance: CETRIMIDE
     Route: 048
  85. CETRIMIDE [Concomitant]
     Active Substance: CETRIMIDE
  86. CHLORAPREP [Concomitant]
     Active Substance: CHLORHEXIDINE GLUCONATE\ISOPROPYL ALCOHOL
     Indication: Product used for unknown indication
  87. CHLORHEXIDINE [Concomitant]
     Active Substance: CHLORHEXIDINE
     Indication: Product used for unknown indication
     Route: 016
  88. CHLORHEXIDINE [Concomitant]
     Active Substance: CHLORHEXIDINE
     Route: 048
  89. CHLORHEXIDINE [Concomitant]
     Active Substance: CHLORHEXIDINE
  90. CHLORHEXIDINE [Concomitant]
     Active Substance: CHLORHEXIDINE
  91. CHOLECALCIFEROL [Concomitant]
     Active Substance: CHOLECALCIFEROL
     Indication: Product used for unknown indication
     Route: 016
  92. CIMZIA [Concomitant]
     Active Substance: CERTOLIZUMAB PEGOL
     Indication: Rheumatoid arthritis
     Route: 058
  93. CIMZIA [Concomitant]
     Active Substance: CERTOLIZUMAB PEGOL
     Indication: Psoriatic arthropathy
     Route: 058
  94. CIMZIA [Concomitant]
     Active Substance: CERTOLIZUMAB PEGOL
     Indication: Psoriasis
     Route: 058
  95. CIMZIA [Concomitant]
     Active Substance: CERTOLIZUMAB PEGOL
  96. CIMZIA [Concomitant]
     Active Substance: CERTOLIZUMAB PEGOL
     Route: 042
  97. CIMZIA [Concomitant]
     Active Substance: CERTOLIZUMAB PEGOL
     Route: 058
  98. CIMZIA [Concomitant]
     Active Substance: CERTOLIZUMAB PEGOL
     Route: 058
  99. CORTISONE [Concomitant]
     Active Substance: CORTISONE
     Indication: Rheumatoid arthritis
  100. CORTISONE [Concomitant]
     Active Substance: CORTISONE
  101. CORTISONE [Concomitant]
     Active Substance: CORTISONE
  102. CORTISONE [Concomitant]
     Active Substance: CORTISONE
     Route: 058
  103. CORTISONE [Concomitant]
     Active Substance: CORTISONE
     Route: 048
  104. CORTISONE [Concomitant]
     Active Substance: CORTISONE
  105. COSENTYX [Concomitant]
     Active Substance: SECUKINUMAB
     Indication: Rheumatoid arthritis
     Route: 005
  106. COSENTYX [Concomitant]
     Active Substance: SECUKINUMAB
  107. DESOXIMETASONE [Concomitant]
     Active Substance: DESOXIMETASONE
     Indication: Rheumatoid arthritis
     Route: 058
  108. DESOXIMETASONE [Concomitant]
     Active Substance: DESOXIMETASONE
     Route: 042
  109. DESOXIMETASONE [Concomitant]
     Active Substance: DESOXIMETASONE
  110. DESOXIMETASONE [Concomitant]
     Active Substance: DESOXIMETASONE
     Route: 058
  111. DESOXIMETASONE [Concomitant]
     Active Substance: DESOXIMETASONE
  112. DESOXIMETASONE [Concomitant]
     Active Substance: DESOXIMETASONE
     Route: 048
  113. DESOXIMETASONE [Concomitant]
     Active Substance: DESOXIMETASONE
  114. DICLOFENAC [Concomitant]
     Active Substance: DICLOFENAC
     Indication: Product used for unknown indication
  115. DICLOFENAC [Concomitant]
     Active Substance: DICLOFENAC
     Route: 047
  116. DICLOFENAC SODIUM [Concomitant]
     Active Substance: DICLOFENAC SODIUM
     Indication: Systemic lupus erythematosus
     Route: 047
  117. DICLOFENAC SODIUM [Concomitant]
     Active Substance: DICLOFENAC SODIUM
     Indication: Synovitis
  118. DICLOFENAC SODIUM [Concomitant]
     Active Substance: DICLOFENAC SODIUM
     Indication: Rheumatoid arthritis
  119. DICLOFENAC SODIUM [Concomitant]
     Active Substance: DICLOFENAC SODIUM
     Indication: Psoriatic arthropathy
     Route: 048
  120. DICLOFENAC SODIUM [Concomitant]
     Active Substance: DICLOFENAC SODIUM
     Indication: Pemphigus
  121. DICLOFENAC SODIUM [Concomitant]
     Active Substance: DICLOFENAC SODIUM
     Indication: Inflammation
  122. DICLOFENAC SODIUM [Concomitant]
     Active Substance: DICLOFENAC SODIUM
     Indication: Bursitis
  123. DILTIAZEM [Concomitant]
     Active Substance: DILTIAZEM
     Indication: Product used for unknown indication
  124. DILTIAZEM [Concomitant]
     Active Substance: DILTIAZEM
     Route: 042
  125. DILTIAZEM [Concomitant]
     Active Substance: DILTIAZEM
  126. DOXYCYCLINE HYCLATE [Concomitant]
     Active Substance: DOXYCYCLINE HYCLATE
     Indication: Product used for unknown indication
  127. ENBREL [Concomitant]
     Active Substance: ETANERCEPT
     Indication: Rheumatoid arthritis
     Route: 058
  128. ENBREL [Concomitant]
     Active Substance: ETANERCEPT
     Indication: Psoriatic arthropathy
     Route: 058
  129. ENBREL [Concomitant]
     Active Substance: ETANERCEPT
     Route: 058
  130. ENBREL [Concomitant]
     Active Substance: ETANERCEPT
     Route: 058
  131. ENBREL [Concomitant]
     Active Substance: ETANERCEPT
     Route: 058
  132. ENBREL [Concomitant]
     Active Substance: ETANERCEPT
     Route: 058
  133. ENTYVIO [Concomitant]
     Active Substance: VEDOLIZUMAB
     Indication: Product used for unknown indication
  134. ERELZI [Concomitant]
     Active Substance: ETANERCEPT-SZZS
     Indication: Rheumatoid arthritis
     Route: 058
  135. ERELZI [Concomitant]
     Active Substance: ETANERCEPT-SZZS
     Route: 058
  136. FLUMETHASONE PIVALATE [Concomitant]
     Active Substance: FLUMETHASONE PIVALATE
     Indication: Rheumatoid arthritis
     Route: 048
  137. FLUMETHASONE PIVALATE [Concomitant]
     Active Substance: FLUMETHASONE PIVALATE
     Route: 048
  138. FLUMETHASONE PIVALATE [Concomitant]
     Active Substance: FLUMETHASONE PIVALATE
     Route: 048
  139. FLUMETHASONE PIVALATE [Concomitant]
     Active Substance: FLUMETHASONE PIVALATE
     Route: 048
  140. FLUMETHASONE PIVALATE [Concomitant]
     Active Substance: FLUMETHASONE PIVALATE
     Route: 048
  141. FLUMETHASONE PIVALATE [Concomitant]
     Active Substance: FLUMETHASONE PIVALATE
     Route: 048
  142. FLUMETHASONE PIVALATE [Concomitant]
     Active Substance: FLUMETHASONE PIVALATE
  143. FLUMETHASONE PIVALATE [Concomitant]
     Active Substance: FLUMETHASONE PIVALATE
  144. FLUMETHASONE PIVALATE [Concomitant]
     Active Substance: FLUMETHASONE PIVALATE
  145. FLUMETHASONE PIVALATE [Concomitant]
     Active Substance: FLUMETHASONE PIVALATE
     Route: 048
  146. FLUMETHASONE PIVALATE [Concomitant]
     Active Substance: FLUMETHASONE PIVALATE
  147. FLUMETHASONE PIVALATE [Concomitant]
     Active Substance: FLUMETHASONE PIVALATE
  148. FLUMETHASONE PIVALATE [Concomitant]
     Active Substance: FLUMETHASONE PIVALATE
     Route: 048
  149. FLUMETHASONE PIVALATE [Concomitant]
     Active Substance: FLUMETHASONE PIVALATE
  150. FLUMETHASONE PIVALATE [Concomitant]
     Active Substance: FLUMETHASONE PIVALATE
     Route: 048
  151. FOLIC ACID [Concomitant]
     Active Substance: FOLIC ACID
     Indication: Rheumatoid arthritis
     Route: 048
  152. FOLIC ACID [Concomitant]
     Active Substance: FOLIC ACID
     Route: 048
  153. FOLIC ACID [Concomitant]
     Active Substance: FOLIC ACID
     Route: 048
  154. FOLIC ACID [Concomitant]
     Active Substance: FOLIC ACID
     Route: 048
  155. FOLIC ACID [Concomitant]
     Active Substance: FOLIC ACID
  156. FOLIC ACID [Concomitant]
     Active Substance: FOLIC ACID
     Route: 048
  157. FOLIC ACID [Concomitant]
     Active Substance: FOLIC ACID
     Route: 048
  158. FOLIC ACID [Concomitant]
     Active Substance: FOLIC ACID
     Route: 048
  159. FOLIC ACID [Concomitant]
     Active Substance: FOLIC ACID
     Route: 048
  160. FOLIC ACID [Concomitant]
     Active Substance: FOLIC ACID
     Route: 048
  161. FOLIC ACID [Concomitant]
     Active Substance: FOLIC ACID
     Route: 048
  162. FOLIC ACID [Concomitant]
     Active Substance: FOLIC ACID
     Route: 048
  163. FOLIC ACID [Concomitant]
     Active Substance: FOLIC ACID
  164. FOLIC ACID [Concomitant]
     Active Substance: FOLIC ACID
  165. FOLIC ACID [Concomitant]
     Active Substance: FOLIC ACID
  166. FOLIC ACID [Concomitant]
     Active Substance: FOLIC ACID
  167. FOSAMAX [Concomitant]
     Active Substance: ALENDRONATE SODIUM
     Indication: Product used for unknown indication
  168. GOLIMUMAB [Concomitant]
     Active Substance: GOLIMUMAB
     Indication: Product used for unknown indication
     Route: 048
  169. GOLIMUMAB [Concomitant]
     Active Substance: GOLIMUMAB
  170. GOLIMUMAB [Concomitant]
     Active Substance: GOLIMUMAB
     Route: 058
  171. HUMIRA [Concomitant]
     Active Substance: ADALIMUMAB
     Indication: Rheumatoid arthritis
  172. HUMIRA [Concomitant]
     Active Substance: ADALIMUMAB
     Indication: Psoriatic arthropathy
  173. HUMIRA [Concomitant]
     Active Substance: ADALIMUMAB
  174. HUMIRA [Concomitant]
     Active Substance: ADALIMUMAB
     Route: 048
  175. HUMIRA [Concomitant]
     Active Substance: ADALIMUMAB
     Route: 058
  176. HYDROCORTISONE [Concomitant]
     Active Substance: HYDROCORTISONE
     Indication: Product used for unknown indication
  177. HYDROCORTISONE BUTYRATE [Concomitant]
     Active Substance: HYDROCORTISONE BUTYRATE
     Indication: Product used for unknown indication
     Route: 058
  178. HYDROCORTISONE SODIUM SUCCINATE [Concomitant]
     Active Substance: HYDROCORTISONE SODIUM SUCCINATE
     Indication: Product used for unknown indication
     Route: 058
  179. HYDROCORTISONE SODIUM SUCCINATE [Concomitant]
     Active Substance: HYDROCORTISONE SODIUM SUCCINATE
     Route: 048
  180. HYDROCORTISONE SODIUM SUCCINATE [Concomitant]
     Active Substance: HYDROCORTISONE SODIUM SUCCINATE
  181. HYDROCORTISONE SODIUM SUCCINATE [Concomitant]
     Active Substance: HYDROCORTISONE SODIUM SUCCINATE
  182. HYDROCORTISONE SODIUM SUCCINATE [Concomitant]
     Active Substance: HYDROCORTISONE SODIUM SUCCINATE
     Route: 003
  183. HYDROCORTISONE SODIUM SUCCINATE [Concomitant]
     Active Substance: HYDROCORTISONE SODIUM SUCCINATE
     Dosage: POWDER FOR SOLUTION
  184. HYDROXYCHLOROQUINE [Concomitant]
     Active Substance: HYDROXYCHLOROQUINE
     Indication: Product used for unknown indication
     Route: 048
  185. HYDROXYCHLOROQUINE [Concomitant]
     Active Substance: HYDROXYCHLOROQUINE
  186. HYRIMOZ [Concomitant]
     Active Substance: ADALIMUMAB-ADAZ
     Indication: Rheumatoid arthritis
     Route: 042
  187. HYRIMOZ [Concomitant]
     Active Substance: ADALIMUMAB-ADAZ
     Indication: Psoriatic arthropathy
  188. HYRIMOZ [Concomitant]
     Active Substance: ADALIMUMAB-ADAZ
     Route: 058
  189. HYRIMOZ [Concomitant]
     Active Substance: ADALIMUMAB-ADAZ
     Route: 041
  190. HYRIMOZ [Concomitant]
     Active Substance: ADALIMUMAB-ADAZ
     Route: 058
  191. HYRIMOZ [Concomitant]
     Active Substance: ADALIMUMAB-ADAZ
     Route: 058
  192. HYRIMOZ [Concomitant]
     Active Substance: ADALIMUMAB-ADAZ
     Route: 048
  193. HYRIMOZ [Concomitant]
     Active Substance: ADALIMUMAB-ADAZ
  194. INFLIXIMAB [Concomitant]
     Active Substance: INFLIXIMAB
     Indication: Rheumatoid arthritis
  195. INFLIXIMAB [Concomitant]
     Active Substance: INFLIXIMAB
     Indication: Psoriatic arthropathy
  196. INFLIXIMAB [Concomitant]
     Active Substance: INFLIXIMAB
  197. INFLIXIMAB [Concomitant]
     Active Substance: INFLIXIMAB
     Route: 042
  198. ISOPROPYL ALCOHOL [Concomitant]
     Active Substance: ISOPROPYL ALCOHOL
     Indication: Product used for unknown indication
  199. LYRICA [Concomitant]
     Active Substance: PREGABALIN
     Indication: Product used for unknown indication
  200. METHOTREXATE [Concomitant]
     Active Substance: METHOTREXATE
     Indication: Rheumatoid arthritis
     Route: 013
  201. METHOTREXATE [Concomitant]
     Active Substance: METHOTREXATE
  202. METHOTREXATE [Concomitant]
     Active Substance: METHOTREXATE
  203. METHOTREXATE [Concomitant]
     Active Substance: METHOTREXATE
     Route: 048
  204. METHOTREXATE [Concomitant]
     Active Substance: METHOTREXATE
     Route: 048
  205. METHOTREXATE [Concomitant]
     Active Substance: METHOTREXATE
     Route: 058
  206. METHOTREXATE [Concomitant]
     Active Substance: METHOTREXATE
     Route: 048
  207. METHOTREXATE [Concomitant]
     Active Substance: METHOTREXATE
  208. METHOTREXATE [Concomitant]
     Active Substance: METHOTREXATE
     Route: 058
  209. METHOTREXATE [Concomitant]
     Active Substance: METHOTREXATE
     Route: 048
  210. METHOTREXATE [Concomitant]
     Active Substance: METHOTREXATE
     Route: 048
  211. METHOTREXATE [Concomitant]
     Active Substance: METHOTREXATE
     Route: 048
  212. METHOTREXATE [Concomitant]
     Active Substance: METHOTREXATE
  213. METHOTREXATE [Concomitant]
     Active Substance: METHOTREXATE
     Route: 058
  214. METHOTREXATE [Concomitant]
     Active Substance: METHOTREXATE
     Route: 013
  215. NAPROXEN SODIUM [Concomitant]
     Active Substance: NAPROXEN SODIUM
     Indication: Rheumatoid arthritis
  216. NAPROXEN SODIUM [Concomitant]
     Active Substance: NAPROXEN SODIUM
  217. OTEZLA [Concomitant]
     Active Substance: APREMILAST
     Indication: Product used for unknown indication
     Route: 048
  218. OTEZLA [Concomitant]
     Active Substance: APREMILAST
     Route: 048
  219. OXYCODONE [Concomitant]
     Active Substance: OXYCODONE
     Indication: Product used for unknown indication
     Route: 048
  220. OXYCODONE [Concomitant]
     Active Substance: OXYCODONE
  221. OXYCODONE HYDROCHLORIDE [Concomitant]
     Active Substance: OXYCODONE HYDROCHLORIDE
     Indication: Product used for unknown indication
     Route: 016
  222. OXYCODONE HYDROCHLORIDE [Concomitant]
     Active Substance: OXYCODONE HYDROCHLORIDE
  223. OXYCODONE TEREPHTHALATE [Concomitant]
     Active Substance: OXYCODONE TEREPHTHALATE
     Indication: Product used for unknown indication
     Route: 016
  224. OXYCODONE TEREPHTHALATE [Concomitant]
     Active Substance: OXYCODONE TEREPHTHALATE
  225. PERIOGARD [Concomitant]
     Active Substance: CHLORHEXIDINE GLUCONATE
     Indication: Product used for unknown indication
     Route: 048
  226. PERIOGARD [Concomitant]
     Active Substance: CHLORHEXIDINE GLUCONATE
  227. PHTHALYLSULFATHIAZOLE [Concomitant]
     Active Substance: PHTHALYLSULFATHIAZOLE
     Indication: Product used for unknown indication
  228. PREDNISOLONE [Concomitant]
     Active Substance: PREDNISOLONE
     Indication: Systemic lupus erythematosus
  229. PREDNISOLONE [Concomitant]
     Active Substance: PREDNISOLONE
     Indication: Synovitis
     Route: 048
  230. PREDNISOLONE [Concomitant]
     Active Substance: PREDNISOLONE
     Indication: Rheumatoid arthritis
     Route: 048
  231. PREDNISOLONE [Concomitant]
     Active Substance: PREDNISOLONE
     Indication: Psoriatic arthropathy
  232. PREDNISOLONE [Concomitant]
     Active Substance: PREDNISOLONE
     Indication: Pemphigus
  233. PREDNISOLONE [Concomitant]
     Active Substance: PREDNISOLONE
     Indication: Condition aggravated
     Route: 048
  234. PREDNISOLONE [Concomitant]
     Active Substance: PREDNISOLONE
     Route: 048
  235. PREDNISOLONE [Concomitant]
     Active Substance: PREDNISOLONE
     Route: 048
  236. PREDNISOLONE [Concomitant]
     Active Substance: PREDNISOLONE
     Route: 048
  237. PREDNISOLONE [Concomitant]
     Active Substance: PREDNISOLONE
     Route: 042
  238. PREDNISONE [Concomitant]
     Active Substance: PREDNISONE
     Indication: Product used for unknown indication
     Route: 048
  239. PREDNISONE [Concomitant]
     Active Substance: PREDNISONE
  240. PREDNISONE [Concomitant]
     Active Substance: PREDNISONE
     Route: 058
  241. PREDNISONE [Concomitant]
     Active Substance: PREDNISONE
  242. PREDNISONE [Concomitant]
     Active Substance: PREDNISONE
     Route: 048
  243. PREDNISONE [Concomitant]
     Active Substance: PREDNISONE
     Route: 048
  244. PREDNISONE [Concomitant]
     Active Substance: PREDNISONE
  245. PREDNISONE [Concomitant]
     Active Substance: PREDNISONE
  246. PREDNISONE [Concomitant]
     Active Substance: PREDNISONE
  247. PREDNISONE [Concomitant]
     Active Substance: PREDNISONE
  248. PREDNISONE [Concomitant]
     Active Substance: PREDNISONE
     Route: 048
  249. PREDNISONE [Concomitant]
     Active Substance: PREDNISONE
     Route: 048
  250. PREDNISONE [Concomitant]
     Active Substance: PREDNISONE
  251. PREDNISONE [Concomitant]
     Active Substance: PREDNISONE
     Route: 042
  252. PSEUDOEPHEDRINE HYDROCHLORIDE [Concomitant]
     Active Substance: PSEUDOEPHEDRINE HYDROCHLORIDE
     Indication: Rheumatoid arthritis
  253. PSEUDOEPHEDRINE HYDROCHLORIDE [Concomitant]
     Active Substance: PSEUDOEPHEDRINE HYDROCHLORIDE
  254. CETIRIZINE HYDROCHLORIDE [Concomitant]
     Active Substance: CETIRIZINE HYDROCHLORIDE
     Indication: Urticaria
  255. CETIRIZINE HYDROCHLORIDE [Concomitant]
     Active Substance: CETIRIZINE HYDROCHLORIDE
     Indication: Rheumatoid arthritis
  256. CETIRIZINE HYDROCHLORIDE [Concomitant]
     Active Substance: CETIRIZINE HYDROCHLORIDE
     Route: 048
  257. CETIRIZINE HYDROCHLORIDE [Concomitant]
     Active Substance: CETIRIZINE HYDROCHLORIDE
  258. CETIRIZINE HYDROCHLORIDE [Concomitant]
     Active Substance: CETIRIZINE HYDROCHLORIDE
     Route: 005
  259. CETIRIZINE HYDROCHLORIDE [Concomitant]
     Active Substance: CETIRIZINE HYDROCHLORIDE
  260. CETIRIZINE HYDROCHLORIDE [Concomitant]
     Active Substance: CETIRIZINE HYDROCHLORIDE
     Route: 016
  261. CETIRIZINE HYDROCHLORIDE\PSEUDOEPHEDRINE HYDROCHLORIDE [Concomitant]
     Active Substance: CETIRIZINE HYDROCHLORIDE\PSEUDOEPHEDRINE HYDROCHLORIDE
     Indication: Rheumatoid arthritis
  262. CETIRIZINE HYDROCHLORIDE\PSEUDOEPHEDRINE HYDROCHLORIDE [Concomitant]
     Active Substance: CETIRIZINE HYDROCHLORIDE\PSEUDOEPHEDRINE HYDROCHLORIDE
     Route: 048
  263. CETIRIZINE HYDROCHLORIDE\PSEUDOEPHEDRINE HYDROCHLORIDE [Concomitant]
     Active Substance: CETIRIZINE HYDROCHLORIDE\PSEUDOEPHEDRINE HYDROCHLORIDE
  264. CETIRIZINE HYDROCHLORIDE\PSEUDOEPHEDRINE HYDROCHLORIDE [Concomitant]
     Active Substance: CETIRIZINE HYDROCHLORIDE\PSEUDOEPHEDRINE HYDROCHLORIDE
     Dosage: TABLET (EXTENDED RELEASE)
  265. REMICADE [Concomitant]
     Active Substance: INFLIXIMAB
     Indication: Product used for unknown indication
     Dosage: POWDER FOR SOLUTION
     Route: 042
  266. REMICADE [Concomitant]
     Active Substance: INFLIXIMAB
     Route: 048
  267. REMICADE [Concomitant]
     Active Substance: INFLIXIMAB
     Route: 048
  268. REMICADE [Concomitant]
     Active Substance: INFLIXIMAB
     Route: 058
  269. REMICADE [Concomitant]
     Active Substance: INFLIXIMAB
  270. REMICADE [Concomitant]
     Active Substance: INFLIXIMAB
  271. REMICADE [Concomitant]
     Active Substance: INFLIXIMAB
  272. REMICADE [Concomitant]
     Active Substance: INFLIXIMAB
  273. REMICADE [Concomitant]
     Active Substance: INFLIXIMAB
     Route: 048
  274. REMICADE [Concomitant]
     Active Substance: INFLIXIMAB
  275. REMICADE [Concomitant]
     Active Substance: INFLIXIMAB
     Route: 005
  276. REMICADE [Concomitant]
     Active Substance: INFLIXIMAB
  277. REMICADE [Concomitant]
     Active Substance: INFLIXIMAB
     Route: 042
  278. REMICADE [Concomitant]
     Active Substance: INFLIXIMAB
     Route: 042
  279. RITUXIMAB [Concomitant]
     Active Substance: RITUXIMAB
     Indication: Rheumatoid arthritis
  280. RITUXIMAB [Concomitant]
     Active Substance: RITUXIMAB
  281. RITUXIMAB [Concomitant]
     Active Substance: RITUXIMAB
     Route: 042
  282. RITUXIMAB [Concomitant]
     Active Substance: RITUXIMAB
     Route: 058
  283. RITUXIMAB [Concomitant]
     Active Substance: RITUXIMAB
     Route: 041
  284. RITUXIMAB [Concomitant]
     Active Substance: RITUXIMAB
  285. RITUXIMAB [Concomitant]
     Active Substance: RITUXIMAB
     Route: 014
  286. RITUXIMAB [Concomitant]
     Active Substance: RITUXIMAB
     Route: 016
  287. APREMILAST [Concomitant]
     Active Substance: APREMILAST
     Indication: Product used for unknown indication
  288. APREMILAST [Concomitant]
     Active Substance: APREMILAST
     Route: 048
  289. APREMILAST [Concomitant]
     Active Substance: APREMILAST
  290. HYDROCORTISONE [Concomitant]
     Active Substance: HYDROCORTISONE
     Indication: Rheumatoid arthritis
  291. HYDROCORTISONE [Concomitant]
     Active Substance: HYDROCORTISONE
  292. HYDROCORTISONE [Concomitant]
     Active Substance: HYDROCORTISONE
  293. HYDROCORTISONE [Concomitant]
     Active Substance: HYDROCORTISONE
  294. HYDROCORTISONE [Concomitant]
     Active Substance: HYDROCORTISONE
  295. HYDROCORTISONE [Concomitant]
     Active Substance: HYDROCORTISONE
  296. HYDROCORTISONE [Concomitant]
     Active Substance: HYDROCORTISONE
  297. HYDROCORTISONE [Concomitant]
     Active Substance: HYDROCORTISONE
     Route: 058
  298. HYDROCORTISONE [Concomitant]
     Active Substance: HYDROCORTISONE
  299. HYDROCORTISONE [Concomitant]
     Active Substance: HYDROCORTISONE
  300. HYDROCORTISONE [Concomitant]
     Active Substance: HYDROCORTISONE
     Route: 048
  301. LEFLUNOMIDE [Concomitant]
     Active Substance: LEFLUNOMIDE
     Indication: Rheumatoid arthritis
     Route: 048
  302. LEFLUNOMIDE [Concomitant]
     Active Substance: LEFLUNOMIDE
     Route: 048
  303. LEFLUNOMIDE [Concomitant]
     Active Substance: LEFLUNOMIDE
     Route: 048
  304. LEFLUNOMIDE [Concomitant]
     Active Substance: LEFLUNOMIDE
  305. MOXIFLOXACIN HYDROCHLORIDE [Concomitant]
     Active Substance: MOXIFLOXACIN HYDROCHLORIDE
     Indication: Product used for unknown indication
     Dosage: SOLUTION OPHTHALMIC
     Route: 058
  306. MYCOPHENOLATE MOFETIL [Concomitant]
     Active Substance: MYCOPHENOLATE MOFETIL
     Indication: Rheumatoid arthritis
  307. PANTOPRAZOLE SODIUM [Concomitant]
     Active Substance: PANTOPRAZOLE SODIUM
     Indication: Product used for unknown indication
     Dosage: TABLET (DELAYED RELEASE)
  308. PANTOPRAZOLE SODIUM [Concomitant]
     Active Substance: PANTOPRAZOLE SODIUM
     Route: 016
  309. PREGABALIN [Concomitant]
     Active Substance: PREGABALIN
     Indication: Product used for unknown indication
  310. SIMPONI [Concomitant]
     Active Substance: GOLIMUMAB
     Indication: Rheumatoid arthritis
     Dosage: SOLUTION SUBCUTANEOUS
     Route: 042
  311. SIMPONI [Concomitant]
     Active Substance: GOLIMUMAB
     Indication: Psoriatic arthropathy
     Route: 058
  312. SIMPONI [Concomitant]
     Active Substance: GOLIMUMAB
     Route: 058
  313. STELARA [Concomitant]
     Active Substance: USTEKINUMAB
     Indication: Rheumatoid arthritis
     Dosage: SOLUTION SUBCUTANEOUS
     Route: 042
  314. STELARA [Concomitant]
     Active Substance: USTEKINUMAB
     Route: 058
  315. STELARA [Concomitant]
     Active Substance: USTEKINUMAB
     Route: 058
  316. STELARA [Concomitant]
     Active Substance: USTEKINUMAB
     Route: 042
  317. SULFAMETHOXAZOLE [Concomitant]
     Active Substance: SULFAMETHOXAZOLE
     Indication: Product used for unknown indication
     Route: 067
  318. SULFAMETHOXAZOLE [Concomitant]
     Active Substance: SULFAMETHOXAZOLE
  319. SULFAMETHOXAZOLE\TRIMETHOPRIM [Concomitant]
     Active Substance: SULFAMETHOXAZOLE\TRIMETHOPRIM
     Indication: Product used for unknown indication
     Route: 048
  320. SULFAMETHOXAZOLE\TRIMETHOPRIM [Concomitant]
     Active Substance: SULFAMETHOXAZOLE\TRIMETHOPRIM
     Route: 048
  321. SULFAMETHOXAZOLE\TRIMETHOPRIM [Concomitant]
     Active Substance: SULFAMETHOXAZOLE\TRIMETHOPRIM
     Route: 048
  322. SULFAMETHOXAZOLE\TRIMETHOPRIM [Concomitant]
     Active Substance: SULFAMETHOXAZOLE\TRIMETHOPRIM
     Route: 048
  323. SULFAMETHOXAZOLE\TRIMETHOPRIM [Concomitant]
     Active Substance: SULFAMETHOXAZOLE\TRIMETHOPRIM
     Route: 042
  324. SULFAMETHOXAZOLE\TRIMETHOPRIM [Concomitant]
     Active Substance: SULFAMETHOXAZOLE\TRIMETHOPRIM
     Route: 048
  325. SULFAMETHOXAZOLE\TRIMETHOPRIM [Concomitant]
     Active Substance: SULFAMETHOXAZOLE\TRIMETHOPRIM
     Route: 067
  326. SULFAMETHOXAZOLE\TRIMETHOPRIM [Concomitant]
     Active Substance: SULFAMETHOXAZOLE\TRIMETHOPRIM
     Route: 016
  327. SULFAMETHOXAZOLE\TRIMETHOPRIM [Concomitant]
     Active Substance: SULFAMETHOXAZOLE\TRIMETHOPRIM
  328. SULFAMETHOXAZOLE\TRIMETHOPRIM [Concomitant]
     Active Substance: SULFAMETHOXAZOLE\TRIMETHOPRIM
  329. SULFAMETHOXAZOLE\TRIMETHOPRIM [Concomitant]
     Active Substance: SULFAMETHOXAZOLE\TRIMETHOPRIM
     Route: 048
  330. SULFAMETHOXAZOLE\TRIMETHOPRIM [Concomitant]
     Active Substance: SULFAMETHOXAZOLE\TRIMETHOPRIM
  331. SULFASALAZINE [Concomitant]
     Active Substance: SULFASALAZINE
     Indication: Rheumatoid arthritis
     Route: 048
  332. SULFASALAZINE [Concomitant]
     Active Substance: SULFASALAZINE
     Route: 048
  333. SULFASALAZINE [Concomitant]
     Active Substance: SULFASALAZINE
  334. SULFASALAZINE [Concomitant]
     Active Substance: SULFASALAZINE
     Route: 048
  335. SULFASALAZINE [Concomitant]
     Active Substance: SULFASALAZINE
     Route: 048
  336. SULFASALAZINE [Concomitant]
     Active Substance: SULFASALAZINE
     Route: 048
  337. SULFASALAZINE [Concomitant]
     Active Substance: SULFASALAZINE
     Route: 048
  338. SULFASALAZINE [Concomitant]
     Active Substance: SULFASALAZINE
     Route: 048
  339. SULFASALAZINE [Concomitant]
     Active Substance: SULFASALAZINE
  340. SULFASALAZINE [Concomitant]
     Active Substance: SULFASALAZINE
     Route: 048
  341. SULFASALAZINE [Concomitant]
     Active Substance: SULFASALAZINE
     Route: 048
  342. SULFASALAZINE [Concomitant]
     Active Substance: SULFASALAZINE
  343. SULFASALAZINE [Concomitant]
     Active Substance: SULFASALAZINE
  344. SULFAMETHOXAZOLE\TRIMETHOPRIM [Concomitant]
     Active Substance: SULFAMETHOXAZOLE\TRIMETHOPRIM
     Indication: Product used for unknown indication
  345. VITAMIN C [Concomitant]
     Active Substance: ASCORBIC ACID
     Indication: Product used for unknown indication
  346. VITAMIN C [Concomitant]
     Active Substance: ASCORBIC ACID
  347. VITAMIN C [Concomitant]
     Active Substance: ASCORBIC ACID
     Route: 016
  348. VITAMIN D3 [Concomitant]
     Active Substance: CHOLECALCIFEROL
     Indication: Rheumatoid arthritis
  349. DICLOFENAC [Concomitant]
     Active Substance: DICLOFENAC
     Indication: Product used for unknown indication
     Route: 048
  350. DICLOFENAC [Concomitant]
     Active Substance: DICLOFENAC
     Route: 047
  351. DICLOFENAC [Concomitant]
     Active Substance: DICLOFENAC
  352. DICLOFENAC [Concomitant]
     Active Substance: DICLOFENAC
  353. DICLOFENAC [Concomitant]
     Active Substance: DICLOFENAC
  354. DICLOFENAC [Concomitant]
     Active Substance: DICLOFENAC
  355. DICLOFENAC [Concomitant]
     Active Substance: DICLOFENAC
     Route: 048
  356. DICLOFENAC [Concomitant]
     Active Substance: DICLOFENAC
  357. PREDNISONE [Concomitant]
     Active Substance: PREDNISONE
     Indication: Rheumatoid arthritis
     Route: 048
  358. XELJANZ [Concomitant]
     Active Substance: TOFACITINIB CITRATE
     Indication: Product used for unknown indication
     Route: 048
  359. XELJANZ [Concomitant]
     Active Substance: TOFACITINIB CITRATE
     Route: 048
  360. XELJANZ [Concomitant]
     Active Substance: TOFACITINIB CITRATE
     Route: 048
  361. XELJANZ [Concomitant]
     Active Substance: TOFACITINIB CITRATE

REACTIONS (1)
  - Death [Fatal]
